FAERS Safety Report 22744659 (Version 2)
Quarter: 2023Q4

REPORT INFORMATION
  Report Type: Report from Study
  Country: US (occurrence: US)
  Receive Date: 20230725
  Receipt Date: 20231031
  Transmission Date: 20240109
  Serious: No
  Sender: FDA-Public Use
  Company Number: US-ACADIA PHARMACEUTICALS INC.-ACA-2022-PIM-004270

PATIENT
  Age: 80 Year
  Sex: Male

DRUGS (15)
  1. NUPLAZID [Suspect]
     Active Substance: PIMAVANSERIN TARTRATE
     Indication: Parkinson^s disease psychosis
     Dosage: 34 MILLIGRAM, QD
     Route: 048
     Dates: start: 20221031, end: 20221128
  2. NUPLAZID [Suspect]
     Active Substance: PIMAVANSERIN TARTRATE
     Indication: Hallucination
     Dosage: 34 MILLIGRAM, QD
     Route: 048
     Dates: end: 20230320
  3. NUPLAZID [Suspect]
     Active Substance: PIMAVANSERIN TARTRATE
     Indication: Delusion
     Dosage: 34 MILLIGRAM, QD
     Route: 048
     Dates: end: 202306
  4. ELIQUIS [Concomitant]
     Active Substance: APIXABAN
  5. NUVIGIL [Concomitant]
     Active Substance: ARMODAFINIL
  6. CARBIDOPA LEVODOPA [Concomitant]
     Active Substance: CARBIDOPA\LEVODOPA
  7. DONEPEZIL [Concomitant]
     Active Substance: DONEPEZIL
  8. FINASTERIDE [Concomitant]
     Active Substance: FINASTERIDE
  9. FUROSEMIDE [Concomitant]
     Active Substance: FUROSEMIDE
  10. AMITIZA [Concomitant]
     Active Substance: LUBIPROSTONE
  11. MEMANTINE [Concomitant]
     Active Substance: MEMANTINE
  12. METOPROLOL [Concomitant]
     Active Substance: METOPROLOL
  13. MIRALAX [Concomitant]
     Active Substance: POLYETHYLENE GLYCOL 3350
  14. POTASSIUM [Concomitant]
     Active Substance: POTASSIUM
  15. TRAMADOL [Concomitant]
     Active Substance: TRAMADOL\TRAMADOL HYDROCHLORIDE

REACTIONS (6)
  - Muscular weakness [Recovering/Resolving]
  - Product dose omission issue [Recovered/Resolved]
  - Product dose omission issue [Not Recovered/Not Resolved]
  - Peripheral swelling [Recovering/Resolving]
  - Gait disturbance [Recovering/Resolving]
  - Oedema peripheral [Not Recovered/Not Resolved]

NARRATIVE: CASE EVENT DATE: 20221128
